FAERS Safety Report 9025590 (Version 1)
Quarter: 2013Q1

REPORT INFORMATION
  Report Type: Spontaneous
  Country: BR (occurrence: BR)
  Receive Date: 20130122
  Receipt Date: 20130122
  Transmission Date: 20140127
  Serious: Yes (Hospitalization)
  Sender: FDA-Public Use
  Company Number: BR-ASTRAZENECA-2013SE03019

PATIENT
  Age: 27903 Day
  Sex: Male
  Weight: 86 kg

DRUGS (6)
  1. NEXIUM [Suspect]
     Indication: GASTRITIS
     Route: 048
     Dates: end: 20130112
  2. NEXIUM [Suspect]
     Indication: GASTRITIS
     Route: 048
  3. JANUVIA [Concomitant]
     Indication: DIABETES MELLITUS
  4. OMETEC [Concomitant]
     Indication: HYPERTENSION
  5. LIPITOR [Concomitant]
     Indication: BLOOD CHOLESTEROL ABNORMAL
  6. ZETIA [Concomitant]
     Indication: BLOOD CHOLESTEROL
     Route: 048

REACTIONS (1)
  - Oral disorder [Recovered/Resolved]
